FAERS Safety Report 11897972 (Version 2)
Quarter: 2016Q1

REPORT INFORMATION
  Report Type: Report from Study
  Country: JP (occurrence: JP)
  Receive Date: 20160108
  Receipt Date: 20160120
  Transmission Date: 20160526
  Serious: No
  Sender: FDA-Public Use
  Company Number: JP-BIOGEN-2016BI00167226

PATIENT
  Sex: Female

DRUGS (1)
  1. BIIB041 [Suspect]
     Active Substance: DALFAMPRIDINE
     Indication: GAIT DISTURBANCE
     Route: 048

REACTIONS (1)
  - Upper respiratory tract inflammation [Unknown]

NARRATIVE: CASE EVENT DATE: 20151229
